FAERS Safety Report 7831741-1 (Version None)
Quarter: 2011Q4

REPORT INFORMATION
  Report Type: 
  Country: None (occurrence: None)
  Receive Date: 20111021
  Receipt Date: 20111017
  Transmission Date: 20120403
  Serious: Yes (Hospitalization)
  Sender: FDA-Public Use
  Company Number: US-SANOFI-AVENTIS-2011SA068688

PATIENT
  Sex: Male

DRUGS (2)
  1. SOLOSTAR [Suspect]
     Dates: start: 20110901
  2. LANTUS [Suspect]
     Route: 065
     Dates: start: 20110901

REACTIONS (1)
  - CHEST PAIN [None]
